FAERS Safety Report 21184589 (Version 2)
Quarter: 2022Q4

REPORT INFORMATION
  Report Type: Report from Study
  Country: US (occurrence: US)
  Receive Date: 20220808
  Receipt Date: 20221124
  Transmission Date: 20230113
  Serious: Yes (Hospitalization, Other)
  Sender: FDA-Public Use
  Company Number: US-BEH-2022148125

PATIENT
  Age: 57 Year
  Sex: Female
  Weight: 79.365 kg

DRUGS (6)
  1. HIZENTRA [Suspect]
     Active Substance: HUMAN IMMUNOGLOBULIN G
     Indication: Primary immunodeficiency syndrome
     Dosage: 24 GRAM, QOW
     Route: 058
     Dates: start: 2020
  2. HIZENTRA [Suspect]
     Active Substance: HUMAN IMMUNOGLOBULIN G
     Dosage: UNK
     Route: 065
     Dates: start: 202210
  3. MICAFUNGIN [Concomitant]
     Active Substance: MICAFUNGIN
     Dosage: UNK
     Route: 042
     Dates: start: 2017
  4. SODIUM CHLORIDE [Concomitant]
     Active Substance: SODIUM CHLORIDE
     Dosage: UNK, QD
     Route: 042
  5. XARELTO [Concomitant]
     Active Substance: RIVAROXABAN
     Indication: Coagulopathy
  6. XARELTO [Concomitant]
     Active Substance: RIVAROXABAN
     Indication: Coagulopathy

REACTIONS (15)
  - Sepsis [Unknown]
  - Fatigue [Unknown]
  - Headache [Unknown]
  - Influenza like illness [Unknown]
  - Illness [Unknown]
  - Loss of employment [Unknown]
  - Disability [Unknown]
  - COVID-19 [Unknown]
  - Influenza [Unknown]
  - Pneumonia [Unknown]
  - Respiratory syncytial virus infection [Unknown]
  - Palpitations [Recovered/Resolved]
  - Feeling abnormal [Recovered/Resolved]
  - Headache [Unknown]
  - Nausea [Unknown]

NARRATIVE: CASE EVENT DATE: 20221001
